FAERS Safety Report 9217209 (Version 2)
Quarter: 2013Q3

REPORT INFORMATION
  Report Type: Report from Study
  Country: BR (occurrence: BR)
  Receive Date: 20130408
  Receipt Date: 20130801
  Transmission Date: 20140515
  Serious: Yes (Other)
  Sender: FDA-Public Use
  Company Number: BR-ROCHE-1086704

PATIENT
  Sex: Female
  Weight: 56 kg

DRUGS (3)
  1. RITUXIMAB [Suspect]
     Indication: RHEUMATOID ARTHRITIS
     Route: 065
     Dates: start: 200912
  2. RITUXIMAB [Suspect]
     Indication: SYSTEMIC LUPUS ERYTHEMATOSUS
     Route: 065
     Dates: start: 201010
  3. CHLOROQUINE [Concomitant]
     Route: 065

REACTIONS (6)
  - Upper limb fracture [Recovered/Resolved]
  - Femur fracture [Recovered/Resolved]
  - Accident [Recovered/Resolved]
  - Haemorrhage [Unknown]
  - Lipid metabolism disorder [Recovered/Resolved]
  - Blood pressure fluctuation [Not Recovered/Not Resolved]
